FAERS Safety Report 13665561 (Version 2)
Quarter: 2017Q3

REPORT INFORMATION
  Report Type: Spontaneous
  Country: US (occurrence: US)
  Receive Date: 20170619
  Receipt Date: 20170801
  Transmission Date: 20171127
  Serious: Yes (Other)
  Sender: FDA-Public Use
  Company Number: US-SA-2017SA105397

PATIENT
  Sex: Male

DRUGS (1)
  1. ALEMTUZUMAB [Suspect]
     Active Substance: ALEMTUZUMAB
     Route: 065
     Dates: start: 2016, end: 2016

REACTIONS (3)
  - Contusion [Unknown]
  - Platelet count decreased [Unknown]
  - Rash [Unknown]

NARRATIVE: CASE EVENT DATE: 2017
